FAERS Safety Report 21633043 (Version 1)
Quarter: 2022Q4

REPORT INFORMATION
  Report Type: Spontaneous
  Country: US (occurrence: US)
  Receive Date: 20221123
  Receipt Date: 20221123
  Transmission Date: 20230113
  Serious: Yes (Hospitalization, Other)
  Sender: FDA-Public Use
  Company Number: US-002147023-NVSC2022US260495

PATIENT
  Sex: Male

DRUGS (5)
  1. ZOFRAN [Suspect]
     Active Substance: ONDANSETRON HYDROCHLORIDE
     Indication: Vomiting
     Dosage: UNK
     Route: 065
     Dates: start: 2022
  2. PROCHLORPERAZINE [Suspect]
     Active Substance: PROCHLORPERAZINE
     Indication: Vomiting
     Dosage: UNK
     Route: 065
     Dates: start: 202210
  3. REMODULIN [Suspect]
     Active Substance: TREPROSTINIL
     Indication: Pulmonary arterial hypertension
     Dosage: UNK (5.0 MG/ML) (0.025 ?G/KG (AT AN INFUSION RATE OF 27 ML/24 HOURS))
     Route: 041
     Dates: start: 2022
  4. REMODULIN [Suspect]
     Active Substance: TREPROSTINIL
     Dosage: UNK (1.0 MG/ML)
     Route: 041
     Dates: start: 2022
  5. DEVICE\POLYURETHANE [Suspect]
     Active Substance: DEVICE\POLYURETHANE
     Indication: Product used for unknown indication
     Dosage: UNK
     Route: 065
     Dates: start: 2022

REACTIONS (4)
  - Restless legs syndrome [Unknown]
  - Retching [Unknown]
  - Vomiting [Unknown]
  - Therapy non-responder [Unknown]

NARRATIVE: CASE EVENT DATE: 20220101
